FAERS Safety Report 8153057-9 (Version None)
Quarter: 2012Q1

REPORT INFORMATION
  Report Type: 
  Country: None (occurrence: None)
  Receive Date: 20120221
  Receipt Date: 20120213
  Transmission Date: 20120608
  Serious: Yes (Hospitalization)
  Sender: FDA-Public Use
  Company Number: JP-PFIZER INC-2012026851

PATIENT
  Age: 29 Year
  Sex: Female

DRUGS (1)
  1. MEDROXYPROGESTERONE ACETATE [Suspect]
     Indication: UTERINE CANCER
     Dosage: UNK
     Dates: start: 20090401

REACTIONS (1)
  - TYPE 1 DIABETES MELLITUS [None]
